FAERS Safety Report 15410662 (Version 1)
Quarter: 2018Q3

REPORT INFORMATION
  Report Type: Spontaneous
  Country: US (occurrence: US)
  Receive Date: 20180919
  Receipt Date: 20180919
  Transmission Date: 20181010
  Serious: Yes (Hospitalization, Disabling)
  Sender: FDA-Public Use
  Company Number: None

PATIENT
  Age: 56 Year
  Sex: Female
  Weight: 115.67 kg

DRUGS (1)
  1. GADOLINIUM CONTRAST [Suspect]
     Active Substance: GADOLINIUM
     Indication: IMAGING PROCEDURE
     Dates: start: 20080924, end: 20170120

REACTIONS (1)
  - Contrast media toxicity [None]

NARRATIVE: CASE EVENT DATE: 20150819
